FAERS Safety Report 4692129-8 (Version None)
Quarter: 2005Q2

REPORT INFORMATION
  Report Type: 
  Country: None (occurrence: None)
  Receive Date: 20050614
  Receipt Date: 20050601
  Transmission Date: 20051028
  Serious: Yes (Other)
  Sender: FDA-Public Use
  Company Number: 2005085428

PATIENT
  Sex: Female

DRUGS (1)
  1. CELEBREX [Suspect]
     Dosage: 200 MG (100 MG 2 IN 1 D) ORAL
     Route: 048

REACTIONS (7)
  - DIARRHOEA [None]
  - DRUG EFFECT DECREASED [None]
  - GASTRIC DISORDER [None]
  - INADEQUATE ANALGESIA [None]
  - MULTIPLE FRACTURES [None]
  - PHARMACEUTICAL PRODUCT COMPLAINT [None]
  - ROAD TRAFFIC ACCIDENT [None]
